FAERS Safety Report 7383016-5 (Version None)
Quarter: 2011Q1

REPORT INFORMATION
  Report Type: 
  Country: None (occurrence: None)
  Receive Date: 20110330
  Receipt Date: 20110324
  Transmission Date: 20110831
  Serious: No
  Sender: FDA-Public Use
  Company Number: US-PFIZER INC-2011066639

PATIENT
  Sex: Male
  Weight: 81.633 kg

DRUGS (3)
  1. VIAGRA [Suspect]
     Dosage: 10 MG, UNK
     Route: 048
  2. NAMENDA [Concomitant]
     Dosage: UNK
  3. ARICEPT [Concomitant]
     Dosage: UNK

REACTIONS (1)
  - DRUG INEFFECTIVE [None]
